FAERS Safety Report 23467075 (Version 1)
Quarter: 2024Q1

REPORT INFORMATION
  Report Type: Spontaneous
  Country: US (occurrence: US)
  Receive Date: 20240201
  Receipt Date: 20240201
  Transmission Date: 20240409
  Serious: No
  Sender: FDA-Public Use
  Company Number: US-PAIPHARMA-2023-US-012109

PATIENT
  Sex: Female

DRUGS (1)
  1. NYSTATIN [Suspect]
     Active Substance: NYSTATIN
     Indication: Candida infection
     Dosage: 0.5 TSP TO 5ML 4 TIMES DAILY
     Route: 048
     Dates: start: 20230506

REACTIONS (3)
  - Blood glucose increased [Unknown]
  - Feeling abnormal [Unknown]
  - Device use confusion [Unknown]

NARRATIVE: CASE EVENT DATE: 20230506
